FAERS Safety Report 7656186-9 (Version None)
Quarter: 2011Q3

REPORT INFORMATION
  Report Type: 
  Country: None (occurrence: None)
  Receive Date: 20110801
  Receipt Date: 20110722
  Transmission Date: 20111222
  Serious: Yes (Disabling, Other)
  Sender: FDA-Public Use
  Company Number: ACO_25997_2011

PATIENT
  Age: 35 Year
  Sex: Female

DRUGS (13)
  1. SIMETHICONE [Concomitant]
  2. OMEPRAZOLE [Concomitant]
  3. VITAMIN B COMPLEX CAP [Concomitant]
  4. CLONAZEPAM [Concomitant]
  5. BACLOFEN [Concomitant]
  6. CELEBREX [Concomitant]
  7. AMANTADINE HCL [Concomitant]
  8. TRAMADOL HCL [Concomitant]
  9. METOCLOPRAMIDE [Concomitant]
  10. OSTEO BI-FLEX (CHONDROITIN SULFATE, GLCOSAMINE HYDROCHLORIDE) [Concomitant]
  11. OSCAL (CALCITRIOL) [Concomitant]
  12. AMPYRA [Suspect]
     Indication: ABASIA
     Dosage: 10 MG, Q 12 HRS, ORAL
     Route: 048
     Dates: start: 20110501, end: 20110711
  13. VITAMIN D [Concomitant]

REACTIONS (11)
  - DECREASED APPETITE [None]
  - CONVULSION [None]
  - SCREAMING [None]
  - VOMITING [None]
  - MUSCULOSKELETAL STIFFNESS [None]
  - DYSGRAPHIA [None]
  - MOVEMENT DISORDER [None]
  - TREMOR [None]
  - SPEECH DISORDER [None]
  - SLEEP TALKING [None]
  - MEMORY IMPAIRMENT [None]
